FAERS Safety Report 5280174-3 (Version None)
Quarter: 2007Q1

REPORT INFORMATION
  Report Type: 
  Country: None (occurrence: None)
  Receive Date: 20070326
  Receipt Date: 20070326
  Transmission Date: 20070707
  Serious: Yes (Other)
  Sender: FDA-Public Use
  Company Number: None

PATIENT
  Age: 44 Year
  Sex: Female
  Weight: 65.7716 kg

DRUGS (1)
  1. MIRENA [Suspect]

REACTIONS (6)
  - ACNE [None]
  - BREAST PAIN [None]
  - FATIGUE [None]
  - INSOMNIA [None]
  - UTERINE SPASM [None]
  - WEIGHT INCREASED [None]
